FAERS Safety Report 5961947-8 (Version None)
Quarter: 2008Q4

REPORT INFORMATION
  Report Type: 
  Country: None (occurrence: None)
  Receive Date: 20081121
  Receipt Date: 20081114
  Transmission Date: 20090506
  Serious: Yes (Hospitalization)
  Sender: FDA-Public Use
  Company Number: DE-BAXTER-2008BH011956

PATIENT
  Age: 65 Year
  Sex: Female

DRUGS (7)
  1. CYCLOPHOSPHAMIDE [Suspect]
     Indication: BREAST CANCER
     Route: 042
     Dates: start: 20081007
  2. PACLITAXEL [Suspect]
     Indication: BREAST CANCER
     Route: 042
     Dates: start: 20080826, end: 20080923
  3. EPIRUBICIN [Suspect]
     Indication: BREAST CANCER
     Route: 042
     Dates: start: 20080701, end: 20080812
  4. NOVALGIN /SCH/ [Concomitant]
     Route: 048
     Dates: start: 20080101
  5. CITALOPRAM HYDROBROMIDE [Concomitant]
     Route: 048
     Dates: start: 20080101
  6. NEUPOGEN [Concomitant]
     Route: 058
     Dates: start: 20081021, end: 20081025
  7. CIPROFLOXACIN [Concomitant]
     Route: 048
     Dates: start: 20081026, end: 20081030

REACTIONS (1)
  - BRONCHOPNEUMONIA [None]
